FAERS Safety Report 6087321-4 (Version None)
Quarter: 2009Q1

REPORT INFORMATION
  Report Type: 
  Country: None (occurrence: None)
  Receive Date: 20090223
  Receipt Date: 20090213
  Transmission Date: 20090719
  Serious: Yes (Hospitalization)
  Sender: FDA-Public Use
  Company Number: A0769804A

PATIENT
  Age: 77 Year
  Sex: Female
  Weight: 109.1 kg

DRUGS (8)
  1. AVANDIA [Suspect]
     Dosage: 4MG TWICE PER DAY
     Route: 048
     Dates: start: 20030101, end: 20070501
  2. GLUCOTROL [Concomitant]
  3. SPIRONOLACTONE [Concomitant]
     Dates: start: 20020101, end: 20070101
  4. ISOSORBIDE MONONITRATE [Concomitant]
     Dates: start: 20000101
  5. PROTONIX [Concomitant]
  6. NEXIUM [Concomitant]
  7. ASPIRIN [Concomitant]
  8. VYTORIN [Concomitant]

REACTIONS (5)
  - ARRHYTHMIA [None]
  - CARDIAC DISORDER [None]
  - CARDIAC FAILURE CONGESTIVE [None]
  - CARDIOMYOPATHY [None]
  - MYOCARDIAL INFARCTION [None]
